FAERS Safety Report 4463090-6 (Version None)
Quarter: 2004Q3

REPORT INFORMATION
  Report Type: 
  Country: None (occurrence: None)
  Receive Date: 20040930
  Receipt Date: 20040709
  Transmission Date: 20050211
  Serious: Yes (Hospitalization)
  Sender: FDA-Public Use
  Company Number: BE-ABBOTT-04P-013-0266471-00

PATIENT
  Sex: Female
  Weight: 70 kg

DRUGS (6)
  1. MERIDIA [Suspect]
     Indication: OVERWEIGHT
     Route: 048
     Dates: start: 20040514, end: 20040517
  2. LOSARTAN POTASSIUM [Concomitant]
     Indication: HYPERTENSION
     Route: 048
     Dates: start: 20031201
  3. LEVOTHYROXINE SODIUM [Concomitant]
     Indication: THYROIDECTOMY
     Route: 048
  4. BISELECT [Concomitant]
     Indication: HYPERTENSION
     Route: 048
     Dates: start: 20031201
  5. AMLODIPINE BESYLATE [Concomitant]
     Indication: HYPERTENSION
     Route: 048
     Dates: start: 20031201
  6. ESTROGEN CONTRACEPTION [Concomitant]
     Indication: DRUG USE FOR UNKNOWN INDICATION
     Route: 048
     Dates: end: 20040601

REACTIONS (2)
  - ACUTE CORONARY SYNDROME [None]
  - PAIN [None]
